FAERS Safety Report 8154168-4 (Version None)
Quarter: 2012Q1

REPORT INFORMATION
  Report Type: 
  Country: None (occurrence: None)
  Receive Date: 20120221
  Receipt Date: 20120215
  Transmission Date: 20120608
  Serious: Yes (Hospitalization)
  Sender: FDA-Public Use
  Company Number: US-PFIZER INC-2012037152

PATIENT
  Sex: Female
  Weight: 81 kg

DRUGS (3)
  1. CAMPTOSAR [Suspect]
     Indication: PANCREATIC CARCINOMA
     Dosage: 350 MG, IN 500CC NORMAL SALINE OVER 90 MINUTES EVERY 14 DAYS
     Route: 042
     Dates: start: 20120208
  2. OXALIPLATIN [Concomitant]
     Indication: PANCREATIC CARCINOMA
     Dosage: UNK
  3. LEUCOVORIN CALCIUM [Concomitant]
     Indication: PANCREATIC CARCINOMA
     Dosage: UNK

REACTIONS (4)
  - HYPERHIDROSIS [None]
  - HYPOAESTHESIA [None]
  - DIZZINESS [None]
  - DYSARTHRIA [None]
